FAERS Safety Report 25334162 (Version 1)
Quarter: 2025Q2

REPORT INFORMATION
  Report Type: Spontaneous
  Country: DE (occurrence: DE)
  Receive Date: 20250520
  Receipt Date: 20250520
  Transmission Date: 20250716
  Serious: Yes (Other)
  Sender: DEXCEL LTD.
  Company Number: None

PATIENT
  Age: 30 Year
  Sex: Male
  Weight: 70 kg

DRUGS (4)
  1. VENLAFAXINE HYDROCHLORIDE [Suspect]
     Active Substance: VENLAFAXINE HYDROCHLORIDE
     Indication: Depression
     Dates: start: 201307
  2. VENLAFAXINE HYDROCHLORIDE [Suspect]
     Active Substance: VENLAFAXINE HYDROCHLORIDE
     Indication: Depression
  3. VENLAFAXINE HYDROCHLORIDE [Suspect]
     Active Substance: VENLAFAXINE HYDROCHLORIDE
     Indication: Depression
     Dates: end: 20240724
  4. VENLAFAXINE [Suspect]
     Active Substance: VENLAFAXINE HYDROCHLORIDE
     Indication: Depression
     Dates: start: 202407

REACTIONS (57)
  - Antidepressant discontinuation syndrome [Recovered/Resolved]
  - Influenza like illness [Recovered/Resolved]
  - Chills [Recovered/Resolved]
  - Pyrexia [Recovered/Resolved]
  - Temperature regulation disorder [Recovered/Resolved]
  - Pain in extremity [Recovered/Resolved]
  - Muscle twitching [Recovered/Resolved]
  - Abdominal pain upper [Recovered/Resolved]
  - Gastric ulcer [Recovered/Resolved]
  - Feeling abnormal [Recovered/Resolved]
  - Irritability [Recovered/Resolved]
  - Nasal congestion [Recovered/Resolved]
  - Swollen tongue [Recovered/Resolved]
  - Upper-airway cough syndrome [Recovered/Resolved]
  - Rhinorrhoea [Recovered/Resolved]
  - Dyspnoea [Recovered/Resolved]
  - Ocular discomfort [Recovered/Resolved]
  - Accommodation disorder [Recovered/Resolved]
  - Vision blurred [Recovered/Resolved]
  - Illusion [Recovered/Resolved]
  - Visual field defect [Recovered/Resolved]
  - Headache [Recovered/Resolved]
  - Migraine [Recovered/Resolved]
  - Vibratory sense increased [Recovered/Resolved]
  - Dissociation [Recovered/Resolved]
  - Decreased appetite [Recovered/Resolved]
  - Sleep disorder [Recovered/Resolved]
  - Coordination abnormal [Recovered/Resolved]
  - Gait deviation [Recovered/Resolved]
  - Mobility decreased [Recovered/Resolved]
  - Loss of consciousness [Recovered/Resolved]
  - Dizziness [Recovered/Resolved]
  - Nausea [Recovered/Resolved]
  - Asthenia [Recovered/Resolved]
  - Fatigue [Recovered/Resolved]
  - Feeling of despair [Recovered/Resolved]
  - Helplessness [Recovered/Resolved]
  - Palpitations [Recovered/Resolved]
  - Dyspnoea [Recovered/Resolved]
  - Cortisol increased [Recovered/Resolved]
  - Muscle tightness [Recovered/Resolved]
  - Panic attack [Recovered/Resolved]
  - Anxiety disorder [Recovered/Resolved]
  - Burnout syndrome [Recovered/Resolved]
  - Muscle spasticity [Recovered/Resolved]
  - Muscle twitching [Recovered/Resolved]
  - Restlessness [Recovered/Resolved]
  - Disturbance in attention [Recovered/Resolved]
  - Malaise [Recovered/Resolved]
  - Confusional state [Recovered/Resolved]
  - Libido decreased [Recovered/Resolved]
  - Electric shock sensation [Recovered/Resolved]
  - Essential tremor [Recovered/Resolved]
  - Condition aggravated [Recovered/Resolved]
  - Anxiety disorder [Recovered/Resolved]
  - Hormone level abnormal [Recovered/Resolved]
  - Depression [Recovered/Resolved]

NARRATIVE: CASE EVENT DATE: 20240624
